FAERS Safety Report 19659470 (Version 16)
Quarter: 2023Q1

REPORT INFORMATION
  Report Type: Spontaneous
  Country: FR (occurrence: FR)
  Receive Date: 20210805
  Receipt Date: 20230115
  Transmission Date: 20230418
  Serious: Yes (Hospitalization, Disabling, Other)
  Sender: FDA-Public Use
  Company Number: FR-THERAMEX-2021000843

PATIENT
  Age: 37 Year
  Sex: Female
  Weight: 61 kg

DRUGS (79)
  1. NOMEGESTROL ACETATE [Suspect]
     Active Substance: NOMEGESTROL ACETATE
     Indication: Migraine
     Route: 048
     Dates: start: 20021113, end: 201103
  2. NOMEGESTROL ACETATE [Suspect]
     Active Substance: NOMEGESTROL ACETATE
     Indication: Intermenstrual bleeding
     Route: 065
     Dates: start: 201103
  3. NOMEGESTROL ACETATE [Suspect]
     Active Substance: NOMEGESTROL ACETATE
     Route: 065
     Dates: start: 2002, end: 2011
  4. NOMEGESTROL ACETATE [Suspect]
     Active Substance: NOMEGESTROL ACETATE
     Route: 065
     Dates: start: 20030430
  5. NOMEGESTROL ACETATE [Suspect]
     Active Substance: NOMEGESTROL ACETATE
     Route: 065
     Dates: start: 20031112
  6. NOMEGESTROL ACETATE [Suspect]
     Active Substance: NOMEGESTROL ACETATE
     Route: 065
     Dates: start: 20040330
  7. NOMEGESTROL ACETATE [Suspect]
     Active Substance: NOMEGESTROL ACETATE
     Route: 065
     Dates: start: 20040923
  8. NOMEGESTROL ACETATE [Suspect]
     Active Substance: NOMEGESTROL ACETATE
     Route: 065
     Dates: start: 20050420
  9. NOMEGESTROL ACETATE [Suspect]
     Active Substance: NOMEGESTROL ACETATE
     Route: 065
     Dates: start: 20051025
  10. NOMEGESTROL ACETATE [Suspect]
     Active Substance: NOMEGESTROL ACETATE
     Route: 065
     Dates: start: 20061027
  11. NOMEGESTROL ACETATE [Suspect]
     Active Substance: NOMEGESTROL ACETATE
     Route: 065
     Dates: start: 20070503
  12. NOMEGESTROL ACETATE [Suspect]
     Active Substance: NOMEGESTROL ACETATE
     Route: 065
     Dates: start: 20071010
  13. NOMEGESTROL ACETATE [Suspect]
     Active Substance: NOMEGESTROL ACETATE
     Route: 065
     Dates: start: 20080408
  14. NOMEGESTROL ACETATE [Suspect]
     Active Substance: NOMEGESTROL ACETATE
     Route: 065
     Dates: start: 20080429
  15. NOMEGESTROL ACETATE [Suspect]
     Active Substance: NOMEGESTROL ACETATE
     Route: 065
     Dates: start: 20091116
  16. NOMEGESTROL ACETATE [Suspect]
     Active Substance: NOMEGESTROL ACETATE
     Route: 065
     Dates: start: 20100206
  17. NOMEGESTROL ACETATE [Suspect]
     Active Substance: NOMEGESTROL ACETATE
     Route: 065
     Dates: start: 20110316
  18. VENLAFAXINE [Suspect]
     Active Substance: VENLAFAXINE HYDROCHLORIDE
     Indication: Headache
     Route: 065
  19. BROMAZEPAM [Suspect]
     Active Substance: BROMAZEPAM
     Indication: Product used for unknown indication
     Route: 065
  20. ALBUTEROL [Suspect]
     Active Substance: ALBUTEROL
     Indication: Asthma
     Route: 065
  21. ASPIRIN LYSINE\METOCLOPRAMIDE HYDROCHLORIDE [Suspect]
     Active Substance: ASPIRIN LYSINE\METOCLOPRAMIDE HYDROCHLORIDE
     Indication: Headache
     Route: 065
  22. BROMAZEPAM [Suspect]
     Active Substance: BROMAZEPAM
     Indication: Product used for unknown indication
     Route: 065
  23. AMITRIPTYLINE HYDROCHLORIDE [Suspect]
     Active Substance: AMITRIPTYLINE HYDROCHLORIDE
     Indication: Headache
     Route: 065
  24. ESCITALOPRAM OXALATE [Suspect]
     Active Substance: ESCITALOPRAM OXALATE
     Indication: Product used for unknown indication
     Route: 065
  25. ALMOTRIPTAN MALATE [Suspect]
     Active Substance: ALMOTRIPTAN MALATE
     Indication: Headache
     Route: 065
  26. INDOMETHACIN [Suspect]
     Active Substance: INDOMETHACIN
     Indication: Headache
     Route: 065
  27. OXETORONE [Suspect]
     Active Substance: OXETORONE
     Indication: Headache
     Route: 065
  28. KEPPRA [Suspect]
     Active Substance: LEVETIRACETAM
     Indication: Product used for unknown indication
     Route: 065
  29. CHLORMADINONE ACETATE [Suspect]
     Active Substance: CHLORMADINONE ACETATE
     Indication: Migraine
     Dosage: 1 DOSAGE FORMS DAILY; 1 DOSAGE FORM EVERY 1 DAY
     Route: 048
     Dates: start: 20011105, end: 200211
  30. CHLORMADINONE ACETATE [Suspect]
     Active Substance: CHLORMADINONE ACETATE
     Route: 065
     Dates: start: 20160226, end: 2017
  31. CHLORMADINONE ACETATE [Suspect]
     Active Substance: CHLORMADINONE ACETATE
     Route: 065
     Dates: start: 2019
  32. CHLORMADINONE ACETATE [Suspect]
     Active Substance: CHLORMADINONE ACETATE
     Route: 065
     Dates: start: 2017, end: 2019
  33. CYPROTERONE ACETATE [Suspect]
     Active Substance: CYPROTERONE ACETATE
     Indication: Hirsutism
     Dosage: 50 MILLIGRAM DAILY;
     Route: 048
     Dates: start: 201105, end: 201506
  34. CYPROTERONE ACETATE [Suspect]
     Active Substance: CYPROTERONE ACETATE
     Route: 065
     Dates: start: 201505
  35. CYPROTERONE ACETATE [Suspect]
     Active Substance: CYPROTERONE ACETATE
     Route: 065
     Dates: start: 20150617
  36. CYPROTERONE ACETATE [Suspect]
     Active Substance: CYPROTERONE ACETATE
     Route: 065
     Dates: start: 20110506, end: 201506
  37. CYPROTERONE ACETATE [Suspect]
     Active Substance: CYPROTERONE ACETATE
     Route: 065
     Dates: start: 20111107
  38. CYPROTERONE ACETATE [Suspect]
     Active Substance: CYPROTERONE ACETATE
     Route: 065
     Dates: start: 20120406
  39. CYPROTERONE ACETATE [Suspect]
     Active Substance: CYPROTERONE ACETATE
     Route: 065
     Dates: start: 20121113
  40. CYPROTERONE ACETATE [Suspect]
     Active Substance: CYPROTERONE ACETATE
     Route: 065
     Dates: start: 20130514
  41. CYPROTERONE ACETATE [Suspect]
     Active Substance: CYPROTERONE ACETATE
     Route: 065
     Dates: start: 20131127
  42. CYPROTERONE ACETATE [Suspect]
     Active Substance: CYPROTERONE ACETATE
     Route: 065
     Dates: start: 20150115
  43. CYPROTERONE ACETATE [Suspect]
     Active Substance: CYPROTERONE ACETATE
     Route: 065
     Dates: start: 20150617
  44. CYPROTERONE ACETATE [Suspect]
     Active Substance: CYPROTERONE ACETATE
     Route: 065
     Dates: start: 20170323
  45. CYPROTERONE ACETATE [Suspect]
     Active Substance: CYPROTERONE ACETATE
     Route: 048
     Dates: start: 201105, end: 201504
  46. MEDROL [Suspect]
     Active Substance: METHYLPREDNISOLONE
     Indication: Product used for unknown indication
     Route: 048
     Dates: start: 201602
  47. SINGULAIR [Suspect]
     Active Substance: MONTELUKAST SODIUM
     Indication: Product used for unknown indication
     Route: 065
  48. VENTOLIN [Suspect]
     Active Substance: ALBUTEROL SULFATE
     Indication: Product used for unknown indication
     Route: 065
  49. DIANE (CYPROTERONE ACETATE\ETHINYL ESTRADIOL) [Suspect]
     Active Substance: CYPROTERONE ACETATE\ETHINYL ESTRADIOL
     Indication: Haemorrhage
     Route: 065
     Dates: start: 20001128
  50. DIANE (CYPROTERONE ACETATE\ETHINYL ESTRADIOL) [Suspect]
     Active Substance: CYPROTERONE ACETATE\ETHINYL ESTRADIOL
     Route: 065
     Dates: start: 20011105
  51. DIANE (CYPROTERONE ACETATE\ETHINYL ESTRADIOL) [Concomitant]
     Active Substance: CYPROTERONE ACETATE\ETHINYL ESTRADIOL
     Indication: Haemorrhage
     Route: 065
     Dates: start: 199905, end: 200011
  52. DIANE (CYPROTERONE ACETATE\ETHINYL ESTRADIOL) [Concomitant]
     Active Substance: CYPROTERONE ACETATE\ETHINYL ESTRADIOL
     Indication: Migraine
  53. CHLORMADINONE ACETATE [Concomitant]
     Active Substance: CHLORMADINONE ACETATE
     Indication: Migraine
     Route: 065
     Dates: start: 20160226
  54. CHLORMADINONE ACETATE [Concomitant]
     Active Substance: CHLORMADINONE ACETATE
     Dates: start: 2017, end: 2019
  55. CYPROTERONE ACETATE [Concomitant]
     Active Substance: CYPROTERONE ACETATE
     Indication: Hirsutism
     Dosage: 50 MILLIGRAM DAILY;
     Route: 048
     Dates: start: 201105, end: 201504
  56. CYPROTERONE ACETATE [Concomitant]
     Active Substance: CYPROTERONE ACETATE
     Route: 065
     Dates: start: 201505
  57. CYPROTERONE ACETATE [Concomitant]
     Active Substance: CYPROTERONE ACETATE
     Route: 065
     Dates: start: 20150617
  58. MEDROL [Concomitant]
     Active Substance: METHYLPREDNISOLONE
     Indication: Product used for unknown indication
     Route: 048
     Dates: start: 201602
  59. VENTOLIN [Concomitant]
     Active Substance: ALBUTEROL SULFATE
     Indication: Asthma
     Route: 065
  60. SINGULAIR [Concomitant]
     Active Substance: MONTELUKAST SODIUM
     Indication: Product used for unknown indication
     Route: 065
  61. ESTRADIOL [Concomitant]
     Active Substance: ESTRADIOL
     Indication: Dysmenorrhoea
     Dosage: 1 GEL PRESSURE
     Route: 065
     Dates: start: 20130514
  62. ESTRADIOL [Concomitant]
     Active Substance: ESTRADIOL
     Indication: Hair disorder
     Route: 065
     Dates: start: 20131127
  63. ESTRADIOL [Concomitant]
     Active Substance: ESTRADIOL
     Route: 065
     Dates: start: 20150617
  64. DIHYDROERGOTAMINE MESYLATE [Concomitant]
     Active Substance: DIHYDROERGOTAMINE MESYLATE
     Indication: Product used for unknown indication
     Dosage: COMMENT WHEN LUTENYL WAS RENEWED
     Route: 048
     Dates: start: 20050420
  65. KETOPROFEN [Concomitant]
     Active Substance: KETOPROFEN
     Indication: Product used for unknown indication
     Dosage: COMMENT WHEN LUTENYL WAS RENEWED
     Route: 065
     Dates: start: 20050420
  66. PAROXETINE HYDROCHLORIDE [Concomitant]
     Active Substance: PAROXETINE HYDROCHLORIDE
     Indication: Product used for unknown indication
     Route: 065
     Dates: start: 20051025
  67. PRAZEPAM [Concomitant]
     Active Substance: PRAZEPAM
     Indication: Product used for unknown indication
     Dosage: LUTENYL CONTINUOUSLY. NO PERIOD; FOR LYSANXIA. 1 DF PER 1 DAY AND 3 DF PER 1 DAY
     Route: 048
     Dates: start: 20051025
  68. PRAZEPAM [Concomitant]
     Active Substance: PRAZEPAM
     Dosage: TREATMENT WITH DEROXAT AND LYSANXIA. LUTENYL CONTINUOUSLY. NO PERIOD; FOR LYSANXIA
     Route: 048
     Dates: start: 20060502
  69. PRAZEPAM [Concomitant]
     Active Substance: PRAZEPAM
     Dosage: LUTENYL CONTINUOUSLY. NO PERIOD; FOR LYSANXIA, 1 DF PER 1 DAY AND 3 DF PER 1 DAY
     Route: 048
     Dates: start: 20090429
  70. TIANEPTINE [Concomitant]
     Active Substance: TIANEPTINE
     Indication: Headache
     Route: 048
     Dates: start: 20061027
  71. TIANEPTINE [Concomitant]
     Active Substance: TIANEPTINE
     Route: 048
     Dates: start: 20100608
  72. PROMESTRIENE [Concomitant]
     Active Substance: PROMESTRIENE
     Indication: Product used for unknown indication
     Route: 067
     Dates: start: 20090429
  73. PROMESTRIENE [Concomitant]
     Active Substance: PROMESTRIENE
     Route: 048
     Dates: start: 20090429
  74. PROMESTRIENE [Concomitant]
     Active Substance: PROMESTRIENE
     Route: 067
     Dates: start: 20091116
  75. PROMESTRIENE [Concomitant]
     Active Substance: PROMESTRIENE
     Route: 048
     Dates: start: 20091116
  76. TOPIRAMATE [Concomitant]
     Active Substance: TOPIRAMATE
     Indication: Headache
     Route: 065
     Dates: start: 20100608
  77. TOPIRAMATE [Concomitant]
     Active Substance: TOPIRAMATE
     Dates: start: 20110516
  78. PULMICORT TURBUHALER [Concomitant]
     Active Substance: BUDESONIDE
     Indication: Product used for unknown indication
     Route: 065
     Dates: start: 20110516
  79. Singulaire [Concomitant]
     Indication: Product used for unknown indication
     Route: 065
     Dates: start: 20110516

REACTIONS (85)
  - Meningioma [Not Recovered/Not Resolved]
  - Disability [Unknown]
  - Exophthalmos [Recovered/Resolved]
  - Meningioma [Not Recovered/Not Resolved]
  - Blindness [Not Recovered/Not Resolved]
  - Epilepsy [Not Recovered/Not Resolved]
  - Eyelid ptosis [Not Recovered/Not Resolved]
  - Diplopia [Not Recovered/Not Resolved]
  - Asthenia [Not Recovered/Not Resolved]
  - Nausea [Not Recovered/Not Resolved]
  - Dizziness [Not Recovered/Not Resolved]
  - Eye pain [Not Recovered/Not Resolved]
  - Heterophoria [Recovered/Resolved]
  - Paraesthesia [Not Recovered/Not Resolved]
  - Somnolence [Not Recovered/Not Resolved]
  - Mydriasis [Not Recovered/Not Resolved]
  - Hypoaesthesia eye [Recovered/Resolved]
  - Gait disturbance [Not Recovered/Not Resolved]
  - Visual impairment [Not Recovered/Not Resolved]
  - Anisocoria [Not Recovered/Not Resolved]
  - Impaired work ability [Recovered/Resolved]
  - Ligament sprain [Unknown]
  - Intermenstrual bleeding [Not Recovered/Not Resolved]
  - Retrograde amnesia [Not Recovered/Not Resolved]
  - General physical health deterioration [Unknown]
  - Vertigo [Not Recovered/Not Resolved]
  - Depression [Not Recovered/Not Resolved]
  - Migraine with aura [Not Recovered/Not Resolved]
  - Hypocalcaemia [Not Recovered/Not Resolved]
  - Tremor [Not Recovered/Not Resolved]
  - General physical condition abnormal [Not Recovered/Not Resolved]
  - Headache [Not Recovered/Not Resolved]
  - Sleep disorder [Not Recovered/Not Resolved]
  - Hot flush [Not Recovered/Not Resolved]
  - Balance disorder [Not Recovered/Not Resolved]
  - Malaise [Not Recovered/Not Resolved]
  - Tenderness [Not Recovered/Not Resolved]
  - Eye movement disorder [Not Recovered/Not Resolved]
  - Condition aggravated [Recovered/Resolved]
  - Phonophobia [Unknown]
  - Communication disorder [Not Recovered/Not Resolved]
  - Back pain [Not Recovered/Not Resolved]
  - Tremor [Not Recovered/Not Resolved]
  - Asthenopia [Not Recovered/Not Resolved]
  - Occipital neuralgia [Not Recovered/Not Resolved]
  - Fall [Not Recovered/Not Resolved]
  - Eye injury [Not Recovered/Not Resolved]
  - Cognitive disorder [Not Recovered/Not Resolved]
  - Tachycardia [Unknown]
  - Photophobia [Not Recovered/Not Resolved]
  - Asthenia [Unknown]
  - Nervous system disorder [Recovering/Resolving]
  - Condition aggravated [Unknown]
  - Headache [Not Recovered/Not Resolved]
  - Dizziness [Unknown]
  - Migraine without aura [Not Recovered/Not Resolved]
  - Neck pain [Not Recovered/Not Resolved]
  - Visual impairment [Not Recovered/Not Resolved]
  - Amnesia [Not Recovered/Not Resolved]
  - Amnesia [Not Recovered/Not Resolved]
  - Fatigue [Not Recovered/Not Resolved]
  - Pain [Unknown]
  - Overdose [Unknown]
  - Clumsiness [Not Recovered/Not Resolved]
  - Diplopia [Unknown]
  - Coordination abnormal [Not Recovered/Not Resolved]
  - Discomfort [Not Recovered/Not Resolved]
  - Apathy [Not Recovered/Not Resolved]
  - Cluster headache [Not Recovered/Not Resolved]
  - Amenorrhoea [Unknown]
  - Night sweats [Unknown]
  - Limb discomfort [Unknown]
  - Upper limb fracture [Unknown]
  - Hypertrichosis [Unknown]
  - Hyperhidrosis [Unknown]
  - Weight increased [Unknown]
  - Menometrorrhagia [Unknown]
  - Muscle twitching [Unknown]
  - Movement disorder [Unknown]
  - Ill-defined disorder [Unknown]
  - Crying [Unknown]
  - Blepharospasm [Unknown]
  - Asthenia [Unknown]
  - Product use in unapproved indication [Unknown]
  - Impaired quality of life [Unknown]

NARRATIVE: CASE EVENT DATE: 20021101
